FAERS Safety Report 8291908-8 (Version None)
Quarter: 2012Q2

REPORT INFORMATION
  Report Type: 
  Country: None (occurrence: None)
  Receive Date: 20120417
  Receipt Date: 20110415
  Transmission Date: 20120825
  Serious: No
  Sender: FDA-Public Use
  Company Number: US-ASTRAZENECA-2011SE23779

PATIENT
  Age: 61 Year
  Sex: Female

DRUGS (6)
  1. VICODIN [Concomitant]
  2. CODEINE SULFATE [Concomitant]
  3. DARVOCET [Concomitant]
  4. NEXIUM [Suspect]
     Route: 048
  5. DURAGESIC-100 [Concomitant]
  6. ZOFRAN [Concomitant]

REACTIONS (9)
  - DRUG DOSE OMISSION [None]
  - THERAPEUTIC RESPONSE UNEXPECTED [None]
  - INSOMNIA [None]
  - DEPRESSED MOOD [None]
  - VOMITING [None]
  - WRONG DRUG ADMINISTERED [None]
  - APHAGIA [None]
  - PAIN [None]
  - ADVERSE EVENT [None]
